FAERS Safety Report 4846984-9 (Version None)
Quarter: 2005Q4

REPORT INFORMATION
  Report Type: 
  Country: None (occurrence: None)
  Receive Date: 20051205
  Receipt Date: 20051122
  Transmission Date: 20060501
  Serious: Yes (Other)
  Sender: FDA-Public Use
  Company Number: 2005159296

PATIENT
  Age: 59 Year
  Sex: Male
  Weight: 99.7913 kg

DRUGS (5)
  1. VIAGRA [Suspect]
     Indication: ERECTILE DYSFUNCTION
     Dosage: 50 MG (50 MG, AS NECESSARY), ORAL
     Route: 048
     Dates: start: 20040101, end: 20040101
  2. LIPITOR [Concomitant]
  3. CAPTOPRIL [Concomitant]
  4. K-DUR 10 [Concomitant]
  5. VYTORIN [Concomitant]

REACTIONS (6)
  - AORTIC VALVE REPLACEMENT [None]
  - DRUG EFFECT DECREASED [None]
  - FLUSHING [None]
  - HEADACHE [None]
  - MITRAL VALVE REPLACEMENT [None]
  - THROAT CANCER [None]
